FAERS Safety Report 6981391-4 (Version None)
Quarter: 2010Q3

REPORT INFORMATION
  Report Type: 
  Country: None (occurrence: None)
  Receive Date: 20100909
  Receipt Date: 20100901
  Transmission Date: 20110219
  Serious: Yes (Disabling)
  Sender: FDA-Public Use
  Company Number: 2010090009

PATIENT
  Age: 72 Year
  Sex: Male
  Weight: 89.3586 kg

DRUGS (7)
  1. ONSOLIS [Suspect]
     Indication: CANCER PAIN
     Dosage: TITRATE UP TO 4-200 FILMS/DOSE (UP TO 4 TIMES DAILY),BU
     Route: 002
     Dates: start: 20100806
  2. MS CONTIN [Concomitant]
  3. PERCOCET [Concomitant]
  4. JANUVIA (SITAGLIPTIN) [Concomitant]
  5. NEXIUM [Concomitant]
  6. ATENOLOL (ATENOLOI) [Concomitant]
  7. CITALOPRAM HYDROBROMIDE [Concomitant]

REACTIONS (3)
  - DISABILITY [None]
  - MALIGNANT NEOPLASM PROGRESSION [None]
  - MOVEMENT DISORDER [None]
